FAERS Safety Report 5703751-1 (Version None)
Quarter: 2008Q2

REPORT INFORMATION
  Report Type: 
  Country: None (occurrence: None)
  Receive Date: 20080413
  Receipt Date: 20080403
  Transmission Date: 20081010
  Serious: Yes (Hospitalization)
  Sender: FDA-Public Use
  Company Number: PHHY2008JP03073

PATIENT
  Age: 34 Year
  Sex: Male

DRUGS (2)
  1. SANDOSTATIN LAR [Concomitant]
     Indication: ACROMEGALY
     Dosage: 20 MG, QMO
     Route: 030
     Dates: start: 20070510, end: 20070705
  2. SANDOSTATIN [Suspect]
     Indication: ACROMEGALY
     Dosage: 100 UG, QD
     Route: 058
     Dates: start: 20070308, end: 20070509

REACTIONS (6)
  - DIARRHOEA [None]
  - DRUG EFFECT DECREASED [None]
  - FLATULENCE [None]
  - GASTROINTESTINAL SOUNDS ABNORMAL [None]
  - INSULIN-LIKE GROWTH FACTOR INCREASED [None]
  - PITUITARY TUMOUR REMOVAL [None]
